FAERS Safety Report 9722184 (Version 2)
Quarter: 2016Q1

REPORT INFORMATION
  Report Type: Report from Study
  Country: US (occurrence: US)
  Receive Date: 20131202
  Receipt Date: 20160201
  Transmission Date: 20160526
  Serious: Yes (Hospitalization)
  Sender: FDA-Public Use
  Company Number: US-ROCHE-1307008

PATIENT
  Age: 59 Year
  Sex: Male
  Weight: 73.48 kg

DRUGS (12)
  1. AMLODIPINE [Concomitant]
     Active Substance: AMLODIPINE BESYLATE
     Route: 065
  2. PREDNISONE. [Concomitant]
     Active Substance: PREDNISONE
     Dosage: EVERY OTHER DAY ALTERNATING WITH 10MG
     Route: 065
  3. PROAIR HFA [Concomitant]
     Active Substance: ALBUTEROL SULFATE
     Route: 065
  4. PEGASYS [Suspect]
     Active Substance: PEGINTERFERON ALFA-2A
     Indication: HEPATITIS C
     Route: 058
     Dates: start: 20121001, end: 20121029
  5. ATENOLOL. [Concomitant]
     Active Substance: ATENOLOL
     Route: 065
  6. RITUXAN [Suspect]
     Active Substance: RITUXIMAB
     Indication: RENAL DISORDER
     Dosage: TWO TREATMENT ONLY
     Route: 065
  7. PREDNISONE. [Concomitant]
     Active Substance: PREDNISONE
     Dosage: EVERY OTHER DAY ALTERNATING WITH 15MG
     Route: 065
  8. CLONAZEPAM. [Suspect]
     Active Substance: CLONAZEPAM
     Indication: PRODUCT USED FOR UNKNOWN INDICATION
     Route: 065
  9. PROCRIT [Concomitant]
     Active Substance: ERYTHROPOIETIN
     Indication: ANAEMIA
  10. RIBAVIRIN. [Suspect]
     Active Substance: RIBAVIRIN
     Indication: HEPATITIS C
     Route: 048
     Dates: start: 20121001, end: 20121029
  11. MYCOPHENOLATE MOFETIL. [Suspect]
     Active Substance: MYCOPHENOLATE MOFETIL
     Indication: LIVER TRANSPLANT
     Route: 048
  12. TELAPREVIR [Suspect]
     Active Substance: TELAPREVIR
     Indication: HEPATITIS C
     Route: 048
     Dates: start: 20121001, end: 20121024

REACTIONS (15)
  - Petechiae [Unknown]
  - Swelling [Recovering/Resolving]
  - Fluid retention [Recovering/Resolving]
  - Ulcer haemorrhage [Recovered/Resolved]
  - Anaemia [Recovering/Resolving]
  - Renal disorder [Recovering/Resolving]
  - Fatigue [Unknown]
  - Anorectal discomfort [Recovering/Resolving]
  - Diarrhoea [Recovered/Resolved]
  - Rash [Recovered/Resolved]
  - Insomnia [Unknown]
  - Oedema [Unknown]
  - Decreased appetite [Recovered/Resolved]
  - Nasopharyngitis [Unknown]
  - Proctalgia [Recovered/Resolved]

NARRATIVE: CASE EVENT DATE: 20121010
